FAERS Safety Report 8904136 (Version 1)
Quarter: 2012Q4

REPORT INFORMATION
  Report Type: 
  Country: US (occurrence: US)
  Receive Date: 20121112
  Receipt Date: 20121112
  Transmission Date: 20130627
  Serious: No
  Sender: FDA-Public Use
  Company Number: US-COVIDIEN/TYCO HEALTHCARE/MALLINCKRODT-T201203193

PATIENT
  Sex: Female

DRUGS (3)
  1. FENTANYL TRANSDERMAL SYSTEM [Suspect]
     Dosage: 100 ug/hr q 48 hrs
     Route: 062
  2. METHADONE [Concomitant]
  3. DILAUDID [Concomitant]
     Dosage: UNK

REACTIONS (1)
  - Constipation [Unknown]
